FAERS Safety Report 7227185-6 (Version None)
Quarter: 2011Q1

REPORT INFORMATION
  Report Type: 
  Country: None (occurrence: None)
  Receive Date: 20110114
  Receipt Date: 20110112
  Transmission Date: 20110831
  Serious: Yes (Other)
  Sender: FDA-Public Use
  Company Number: IT-PFIZER INC-2011008447

PATIENT
  Age: 58 Year
  Sex: Male

DRUGS (4)
  1. SOLDESAM [Concomitant]
     Dosage: 64 DROPS, UNK
     Route: 048
     Dates: start: 20090625, end: 20090702
  2. EUTIROX [Concomitant]
     Dosage: 37.5 UG, UNK
     Dates: start: 20090115, end: 20090717
  3. SUTENT [Suspect]
     Indication: RENAL CANCER
     Dosage: 50 MG, 1X/DAY
     Route: 048
     Dates: start: 20070401, end: 20090717
  4. ANTRA [Concomitant]
     Dosage: 20 MG, UNK
     Dates: start: 20070912, end: 20090703

REACTIONS (3)
  - VOMITING [None]
  - GASTRITIS [None]
  - URINARY RETENTION [None]
